FAERS Safety Report 11693265 (Version 2)
Quarter: 2015Q4

REPORT INFORMATION
  Report Type: Spontaneous
  Country: FR (occurrence: FR)
  Receive Date: 20151103
  Receipt Date: 20151116
  Transmission Date: 20160304
  Serious: Yes (Hospitalization)
  Sender: FDA-Public Use
  Company Number: FR-PFIZER INC-2015357169

PATIENT
  Age: 33 Year
  Sex: Male

DRUGS (9)
  1. TERCIAN /00759301/ [Concomitant]
     Active Substance: CYAMEMAZINE
     Dosage: UNK
  2. ADVIL [Suspect]
     Active Substance: IBUPROFEN
     Indication: PAIN
  3. VALIUM [Concomitant]
     Active Substance: DIAZEPAM
     Dosage: UNK
  4. EFFERALGAN [Suspect]
     Active Substance: ACETAMINOPHEN
     Dosage: 1 DF, 4X/DAY
  5. STILNOX [Concomitant]
     Active Substance: ZOLPIDEM TARTRATE
     Dosage: UNK
  6. REBETOL [Concomitant]
     Active Substance: RIBAVIRIN
     Dosage: UNK
  7. ADVIL [Suspect]
     Active Substance: IBUPROFEN
     Indication: PYREXIA
     Dosage: 6 DF, DAILY
     Route: 048
     Dates: start: 200610
  8. ATIVAN [Concomitant]
     Active Substance: LORAZEPAM
     Dosage: UNK
  9. METHADONE HYDROCHLORIDE. [Concomitant]
     Active Substance: METHADONE HYDROCHLORIDE
     Dosage: UNK
     Dates: start: 1993

REACTIONS (2)
  - Hepatocellular injury [Recovered/Resolved]
  - Cholestasis [Unknown]

NARRATIVE: CASE EVENT DATE: 20061029
